FAERS Safety Report 24788613 (Version 1)
Quarter: 2024Q4

REPORT INFORMATION
  Report Type: Spontaneous
  Country: PL (occurrence: PL)
  Receive Date: 20241230
  Receipt Date: 20241230
  Transmission Date: 20250114
  Serious: Yes (Hospitalization)
  Sender: ROCHE
  Company Number: PL-ROCHE-10000164049

PATIENT
  Age: 10 Month
  Sex: Male

DRUGS (1)
  1. HEMLIBRA [Suspect]
     Active Substance: EMICIZUMAB-KXWH
     Indication: Haemophilia
     Route: 065

REACTIONS (8)
  - Infection [Unknown]
  - Pyrexia [Recovered/Resolved]
  - Cough [Unknown]
  - Tracheal disorder [Unknown]
  - Asthenia [Unknown]
  - C-reactive protein increased [Unknown]
  - Haemoglobin decreased [Unknown]
  - Haematocrit decreased [Unknown]
